FAERS Safety Report 21113642 (Version 3)
Quarter: 2022Q3

REPORT INFORMATION
  Report Type: Spontaneous
  Country: CA (occurrence: CA)
  Receive Date: 20220721
  Receipt Date: 20220915
  Transmission Date: 20221026
  Serious: No
  Sender: FDA-Public Use
  Company Number: CA-PFIZER INC-202200944113

PATIENT
  Age: 25 Year
  Sex: Female

DRUGS (5)
  1. GENOTROPIN [Suspect]
     Active Substance: SOMATROPIN
     Indication: Prader-Willi syndrome
     Dosage: 600 UG, DAILY (7X/1 WEEK)
     Route: 058
  2. HUMATROPE [Concomitant]
     Active Substance: SOMATROPIN
     Dosage: 0.6 MG, DAILY
     Route: 058
  3. TALOPRAM [CITALOPRAM HYDROBROMIDE] [Concomitant]
     Dosage: UNK
  4. RISPERDAL [Concomitant]
     Active Substance: RISPERIDONE
     Dosage: 0.5 MG
  5. SOLIFENACIN [Concomitant]
     Active Substance: SOLIFENACIN
     Dosage: 10 MG

REACTIONS (1)
  - Product dose omission issue [Unknown]
